FAERS Safety Report 7951310-2 (Version None)
Quarter: 2011Q4

REPORT INFORMATION
  Report Type: 
  Country: None (occurrence: None)
  Receive Date: 20111129
  Receipt Date: 20111118
  Transmission Date: 20120403
  Serious: Yes (Hospitalization)
  Sender: FDA-Public Use
  Company Number: DSA_48207_2011

PATIENT
  Age: 60 Year
  Sex: Male

DRUGS (9)
  1. ALPRAZOLAM (ALPRAZOLAM) 0.25 MG [Suspect]
     Indication: DEPRESSION
     Dosage: (0.25 MG BID), (DF)
  2. TEMISARTAN [Concomitant]
  3. ESCITALOPRAM [Suspect]
     Indication: DEPRESSION
     Dosage: (10 MG, FREQUENCY UNKNOWN), (DF)
  4. CLONAZEPAM [Suspect]
     Indication: DEPRESSION
     Dosage: (0.5 MG, FREQUENCY UNKNOWN)
  5. ASPIRIN [Concomitant]
  6. SIMVASTATIN [Concomitant]
  7. BUPROPION HCL [Suspect]
     Indication: DEPRESSION
     Dosage: (DF), (DF)
     Dates: start: 20101201
  8. MIRTAZAPINE [Suspect]
     Indication: DEPRESSION
     Dosage: (15 MG, FREQUENCY UNKNOWN), (DF)
     Dates: end: 20101201
  9. CLOPIDOGREL [Concomitant]

REACTIONS (12)
  - WEIGHT INCREASED [None]
  - BLOOD OSMOLARITY DECREASED [None]
  - CARCINOEMBRYONIC ANTIGEN INCREASED [None]
  - PO2 DECREASED [None]
  - SECONDARY ADRENOCORTICAL INSUFFICIENCY [None]
  - INSOMNIA [None]
  - FATIGUE [None]
  - BLOOD CHLORIDE DECREASED [None]
  - ANXIETY [None]
  - ASTHENIA [None]
  - BLOOD UREA INCREASED [None]
  - HYPONATRAEMIA [None]
